FAERS Safety Report 9611972 (Version 2)
Quarter: 2013Q4

REPORT INFORMATION
  Report Type: Spontaneous
  Country: IT (occurrence: IT)
  Receive Date: 20131010
  Receipt Date: 20131120
  Transmission Date: 20140711
  Serious: Yes (Hospitalization)
  Sender: FDA-Public Use
  Company Number: IT-ABBVIE-13P-083-1156056-00

PATIENT
  Age: 74 Year
  Sex: Male

DRUGS (5)
  1. DEPAKINE [Suspect]
     Indication: EPILEPSY
     Dosage: 1000 MG DAILY/TIME TO ONSET: 12 WEEKS
     Route: 048
     Dates: start: 20120113, end: 20120407
  2. CLOPIDOGREL BISULFATE [Concomitant]
     Indication: PRODUCT USED FOR UNKNOWN INDICATION
  3. NEBIVOLOL HYDROCHLORIDE [Concomitant]
     Indication: PRODUCT USED FOR UNKNOWN INDICATION
  4. RABEPRAZOLE SODIUM [Concomitant]
     Indication: PRODUCT USED FOR UNKNOWN INDICATION
  5. LACTITOL [Concomitant]
     Indication: PRODUCT USED FOR UNKNOWN INDICATION

REACTIONS (1)
  - Liver disorder [Recovering/Resolving]
